FAERS Safety Report 6021396-3 (Version None)
Quarter: 2008Q4

REPORT INFORMATION
  Report Type: 
  Country: None (occurrence: None)
  Receive Date: 20081229
  Receipt Date: 20081219
  Transmission Date: 20090506
  Serious: Yes (Death)
  Sender: FDA-Public Use
  Company Number: B0551324A

PATIENT
  Age: 73 Year
  Sex: Male

DRUGS (1)
  1. ESKAZOLE [Suspect]
     Indication: DRUG USE FOR UNKNOWN INDICATION
     Route: 048

REACTIONS (2)
  - LIVER ABSCESS [None]
  - WHITE BLOOD CELL COUNT DECREASED [None]
